FAERS Safety Report 24536915 (Version 2)
Quarter: 2024Q4

REPORT INFORMATION
  Report Type: Spontaneous
  Country: US (occurrence: US)
  Receive Date: 20241022
  Receipt Date: 20241221
  Transmission Date: 20250115
  Serious: No
  Sender: SANOFI AVENTIS
  Company Number: US-SA-2024SA240968

PATIENT
  Age: 81 Year
  Sex: Female

DRUGS (1)
  1. DUPIXENT [Suspect]
     Active Substance: DUPILUMAB
     Indication: Dermatitis atopic
     Dosage: 300 MG, QOW
     Route: 058

REACTIONS (10)
  - Tongue erythema [Unknown]
  - Skin haemorrhage [Unknown]
  - Skin weeping [Unknown]
  - Skin fissures [Unknown]
  - Skin plaque [Unknown]
  - Drug ineffective [Unknown]
  - Dry skin [Unknown]
  - Pruritus [Unknown]
  - Skin exfoliation [Unknown]
  - Erythema [Unknown]
